FAERS Safety Report 6877158-8 (Version None)
Quarter: 2010Q3

REPORT INFORMATION
  Report Type: 
  Country: None (occurrence: None)
  Receive Date: 20100727
  Receipt Date: 20100714
  Transmission Date: 20110219
  Serious: Yes (Congenital Anomaly)
  Sender: FDA-Public Use
  Company Number: US-WATSON-2010-09676

PATIENT

DRUGS (2)
  1. PREDNISONE TAB [Suspect]
     Indication: PRODUCT USED FOR UNKNOWN INDICATION
     Dosage: UNK
     Route: 064
  2. TRIAMCINOLONE ACETONIDE [Suspect]
     Indication: ARTHRITIS
     Dosage: UNK
     Route: 064

REACTIONS (1)
  - HYPOSPADIAS [None]
